FAERS Safety Report 4417140-3 (Version None)
Quarter: 2004Q3

REPORT INFORMATION
  Report Type: 
  Country: None (occurrence: None)
  Receive Date: 20040806
  Receipt Date: 20040709
  Transmission Date: 20050211
  Serious: Yes (Disabling)
  Sender: FDA-Public Use
  Company Number: US-MERCK-0407USA00842

PATIENT
  Age: 63 Year
  Sex: Male

DRUGS (6)
  1. FLONASE [Concomitant]
     Route: 065
  2. GLUCOSAMINE [Concomitant]
     Route: 065
  3. VIOXX [Suspect]
     Indication: ARTHRALGIA
     Route: 048
     Dates: start: 20020101
  4. VIOXX [Suspect]
     Route: 048
     Dates: start: 19990101
  5. VIOXX [Suspect]
     Indication: MONARTHRITIS
     Route: 048
     Dates: start: 20020101
  6. VIOXX [Suspect]
     Route: 048
     Dates: start: 19990101

REACTIONS (2)
  - ARTHRALGIA [None]
  - THERAPEUTIC RESPONSE DECREASED [None]
